FAERS Safety Report 6249233-2 (Version None)
Quarter: 2009Q2

REPORT INFORMATION
  Report Type: 
  Country: None (occurrence: None)
  Receive Date: 20090624
  Receipt Date: 20090624
  Transmission Date: 20091009
  Serious: Yes (Hospitalization)
  Sender: FDA-Public Use
  Company Number: None

PATIENT
  Sex: Male
  Weight: 107 kg

DRUGS (1)
  1. ETANERCEPT -ENBREL- 50 MG/ML [Suspect]
     Indication: PYODERMA GANGRENOSUM
     Dosage: 50 MG WEEKLY SQ RECEIVED LAST DOSE 7 DAYS PRIOR TO EVENT 05/29/09
     Route: 058

REACTIONS (2)
  - DEEP VEIN THROMBOSIS [None]
  - PULMONARY EMBOLISM [None]
